FAERS Safety Report 13017388 (Version 1)
Quarter: 2016Q4

REPORT INFORMATION
  Report Type: Spontaneous
  Country: US (occurrence: US)
  Receive Date: 20161210
  Receipt Date: 20161210
  Transmission Date: 20170207
  Serious: No
  Sender: FDA-Public Use
  Company Number: None

PATIENT
  Age: 50 Year
  Sex: Male
  Weight: 78.75 kg

DRUGS (1)
  1. CICLOPIROX. [Suspect]
     Active Substance: CICLOPIROX
     Dosage: ?          QUANTITY:6.6 ML;?

REACTIONS (4)
  - Product substitution issue [None]
  - Nail discolouration [None]
  - Drug ineffective [None]
  - Product physical consistency issue [None]

NARRATIVE: CASE EVENT DATE: 20161202
